FAERS Safety Report 10347063 (Version 1)
Quarter: 2014Q3

REPORT INFORMATION
  Report Type: Spontaneous
  Country: FR (occurrence: FR)
  Receive Date: 20140729
  Receipt Date: 20140729
  Transmission Date: 20150326
  Serious: Yes (Other)
  Sender: FDA-Public Use
  Company Number: FR-JNJFOC-20140717033

PATIENT
  Age: 60 Year
  Sex: Female

DRUGS (1)
  1. SIMPONI [Suspect]
     Active Substance: GOLIMUMAB
     Indication: ANKYLOSING SPONDYLITIS
     Dosage: MORE THAN ONE YEAR TO UNKNOWN DATE
     Route: 058

REACTIONS (2)
  - Depression [Not Recovered/Not Resolved]
  - Large intestinal ulcer [Recovering/Resolving]
